FAERS Safety Report 4696379-6 (Version None)
Quarter: 2005Q2

REPORT INFORMATION
  Report Type: 
  Country: None (occurrence: None)
  Receive Date: 20050620
  Receipt Date: 20050608
  Transmission Date: 20051028
  Serious: Yes (Hospitalization, Other)
  Sender: FDA-Public Use
  Company Number: 2005087027

PATIENT
  Sex: Female
  Weight: 72.5755 kg

DRUGS (4)
  1. NORVASC [Suspect]
     Indication: HYPERTENSION
     Dosage: 10 MG (10 MG, QD INTERVAL: EVERY DAY), ORAL
     Route: 048
     Dates: start: 20050301, end: 20050501
  2. ALLEGRA [Suspect]
     Indication: MULTIPLE ALLERGIES
     Dosage: ORAL
     Route: 048
     Dates: end: 20050501
  3. NEXIUM [Suspect]
     Indication: ILL-DEFINED DISORDER
     Dosage: ORAL
     Route: 048
     Dates: end: 20050501
  4. ANTIBIOTICS (ANTIBIOTICS) [Suspect]
     Indication: PYREXIA
     Dates: start: 20050401, end: 20050401

REACTIONS (11)
  - ALLERGY TO ANIMAL [None]
  - BLOOD PRESSURE SYSTOLIC INCREASED [None]
  - DEHYDRATION [None]
  - FOOD ALLERGY [None]
  - HOUSE DUST ALLERGY [None]
  - INFLUENZA [None]
  - PYREXIA [None]
  - RASH GENERALISED [None]
  - RENAL FAILURE [None]
  - STREPTOCOCCAL INFECTION [None]
  - VOMITING [None]
